FAERS Safety Report 8108722-6 (Version None)
Quarter: 2012Q1

REPORT INFORMATION
  Report Type: 
  Country: None (occurrence: None)
  Receive Date: 20120202
  Receipt Date: 20120104
  Transmission Date: 20120608
  Serious: No
  Sender: FDA-Public Use
  Company Number: US-AMGEN-USASP2011050676

PATIENT
  Age: 62 Year
  Sex: Female
  Weight: 72.562 kg

DRUGS (11)
  1. ENBREL [Suspect]
     Indication: PSORIASIS
  2. CLONAZEPAM [Concomitant]
     Dosage: 0.5 MG, QD
  3. TRAZODONE HCL [Concomitant]
     Indication: SLEEP APNOEA SYNDROME
     Dosage: 50 MG, UNK (1\2 TABLET AT BEDTIME AS NEEDED).
  4. ENBREL [Suspect]
     Indication: ANKYLOSING SPONDYLITIS
  5. FOLIC ACID [Concomitant]
     Dosage: 1 MG, QD
  6. ENBREL [Suspect]
     Indication: PSORIATIC ARTHROPATHY
     Dosage: 50 MG, QWK
     Route: 058
     Dates: start: 20110601
  7. PREDNISONE TAB [Concomitant]
     Dosage: 10 MG QD, ( 5 MG TABS 2 TABS ONCE A DAY, 1 MG TABS 2 TABS ONCE A DAY)
  8. ENBREL [Suspect]
     Indication: RHEUMATOID ARTHRITIS
  9. METHOTREXATE [Concomitant]
     Dosage: UNK
  10. ESTROGEL [Concomitant]
     Dosage: 0.5 UNK, QD
  11. ARAVA [Concomitant]
     Dosage: 20 MG, QD
     Route: 048

REACTIONS (11)
  - ANKYLOSING SPONDYLITIS [None]
  - BACK PAIN [None]
  - INJECTION SITE PAIN [None]
  - MENTAL IMPAIRMENT [None]
  - RHEUMATOID ARTHRITIS [None]
  - THERAPEUTIC RESPONSE DECREASED [None]
  - ABDOMINAL PAIN [None]
  - COGNITIVE DISORDER [None]
  - TENDON PAIN [None]
  - DISORIENTATION [None]
  - PUSTULAR PSORIASIS [None]
